FAERS Safety Report 12053303 (Version 1)
Quarter: 2016Q1

REPORT INFORMATION
  Report Type: Spontaneous
  Country: US (occurrence: US)
  Receive Date: 20160209
  Receipt Date: 20160209
  Transmission Date: 20160526
  Serious: Yes (Hospitalization)
  Sender: FDA-Public Use
  Company Number: US-ENDO PHARMACEUTICALS INC.-2015-000425

PATIENT
  Age: 59 Year
  Sex: Male
  Weight: 118.04 kg

DRUGS (3)
  1. FORTESTA [Suspect]
     Active Substance: TESTOSTERONE
     Indication: ASTHENIA
     Route: 061
     Dates: start: 201109, end: 201304
  2. FORTESTA [Suspect]
     Active Substance: TESTOSTERONE
     Indication: LIBIDO DECREASED
  3. FORTESTA [Suspect]
     Active Substance: TESTOSTERONE
     Indication: WEIGHT INCREASED

REACTIONS (1)
  - Pulmonary embolism [Unknown]

NARRATIVE: CASE EVENT DATE: 20130418
